FAERS Safety Report 6739139-4 (Version None)
Quarter: 2010Q2

REPORT INFORMATION
  Report Type: 
  Country: None (occurrence: None)
  Receive Date: 20100520
  Receipt Date: 20100517
  Transmission Date: 20101027
  Serious: Yes (Hospitalization)
  Sender: FDA-Public Use
  Company Number: SP02904

PATIENT
  Age: 94 Year
  Sex: Male
  Weight: 88.905 kg

DRUGS (4)
  1. METOZOLV ODT [Suspect]
     Dosage: (DID NOT TAKE)
  2. METOLAZONE [Suspect]
     Dosage: 20 MG (5 MG,4 IN 1 D),ORAL
     Route: 048
     Dates: start: 20100317, end: 20100402
  3. FINASTERIDE [Concomitant]
  4. NEXIUM [Concomitant]

REACTIONS (6)
  - ANGINA PECTORIS [None]
  - CHEST PAIN [None]
  - DRUG DISPENSING ERROR [None]
  - HYPOKALAEMIA [None]
  - HYPONATRAEMIA [None]
  - WRONG DRUG ADMINISTERED [None]
